FAERS Safety Report 6303858-4 (Version None)
Quarter: 2009Q3

REPORT INFORMATION
  Report Type: 
  Country: None (occurrence: None)
  Receive Date: 20090807
  Receipt Date: 20090807
  Transmission Date: 20100115
  Serious: Yes (Hospitalization)
  Sender: FDA-Public Use
  Company Number: None

PATIENT
  Age: 53 Year
  Sex: Male

DRUGS (1)
  1. SULFAMETHOXAZOLE AND TRIMETHOPRIM [Suspect]
     Indication: INFECTION
     Dosage: 1 TAB BID PO
     Route: 048
     Dates: start: 20090518, end: 20090525

REACTIONS (4)
  - HYPERSENSITIVITY [None]
  - POSTOPERATIVE THORACIC PROCEDURE COMPLICATION [None]
  - RASH [None]
  - WOUND DEHISCENCE [None]
